FAERS Safety Report 19222341 (Version 1)
Quarter: 2021Q2

REPORT INFORMATION
  Report Type: Spontaneous
  Country: US (occurrence: US)
  Receive Date: 20210506
  Receipt Date: 20210506
  Transmission Date: 20210717
  Serious: Yes (Other)
  Sender: FDA-Public Use
  Company Number: None

PATIENT
  Age: 52 Year
  Sex: Male

DRUGS (7)
  1. BRAFTOVI [Suspect]
     Active Substance: ENCORAFENIB
     Indication: COLON CANCER
     Route: 048
     Dates: start: 20210426, end: 20210428
  2. PRAVASTATIN 20 MG TABLET [Concomitant]
  3. AMLODIPINE/BENAZEPRIL 50/20 MG CAPSULES [Concomitant]
  4. LORAZEPARN 1 MG TABLET [Concomitant]
  5. TRESIBA [Concomitant]
     Active Substance: INSULIN DEGLUDEC
  6. CLONAZEPAM 1 MG ODT TABLET [Concomitant]
  7. METOPROLOL TARTRATE 25MG TABLET [Concomitant]
     Active Substance: METOPROLOL TARTRATE

REACTIONS (3)
  - Vomiting [None]
  - Nausea [None]
  - Pyrexia [None]
